FAERS Safety Report 6663655-7 (Version None)
Quarter: 2010Q2

REPORT INFORMATION
  Report Type: 
  Country: None (occurrence: None)
  Receive Date: 20100401
  Receipt Date: 20100324
  Transmission Date: 20101027
  Serious: No
  Sender: FDA-Public Use
  Company Number: JP-ROCHE-394610

PATIENT
  Sex: Female

DRUGS (1)
  1. TAMIFLU [Suspect]
     Dosage: DOSING REGIMEN REPORTED AS 150MG.
     Route: 048
     Dates: start: 20050120, end: 20050121

REACTIONS (2)
  - NO ADVERSE EVENT [None]
  - PREGNANCY [None]
